FAERS Safety Report 6874967-6 (Version None)
Quarter: 2010Q3

REPORT INFORMATION
  Report Type: 
  Country: None (occurrence: None)
  Receive Date: 20100723
  Receipt Date: 20100713
  Transmission Date: 20110219
  Serious: Yes (Hospitalization)
  Sender: FDA-Public Use
  Company Number: 2010MA000788

PATIENT
  Age: 85 Year
  Sex: Female

DRUGS (13)
  1. RANITIDINE [Suspect]
     Dosage: 150 MG;BID;PO
     Route: 048
     Dates: start: 20100504
  2. CLOPIDOGREL BISULFATE [Concomitant]
  3. STRONTIUM RANELATE [Concomitant]
  4. VITAMIN TAB [Concomitant]
  5. LOSARTAN [Concomitant]
  6. PAROXETINE HCL [Concomitant]
  7. PROPRANOLOL [Concomitant]
  8. VITAMIN TAB [Concomitant]
  9. CALCICHEW [Concomitant]
  10. CALCITRIOL [Concomitant]
  11. FELODOPINE [Concomitant]
  12. FERROUS SULFATE [Concomitant]
  13. FUROSEMIDE [Concomitant]

REACTIONS (3)
  - ANGIOEDEMA [None]
  - PRURITUS [None]
  - RASH GENERALISED [None]
